FAERS Safety Report 15405856 (Version 1)
Quarter: 2018Q3

REPORT INFORMATION
  Report Type: Spontaneous
  Country: US (occurrence: US)
  Receive Date: 20180918
  Receipt Date: 20180918
  Transmission Date: 20181010
  Serious: Yes (Other)
  Sender: FDA-Public Use
  Company Number: None

PATIENT
  Age: 58 Year
  Sex: Female
  Weight: 51.75 kg

DRUGS (10)
  1. ESTRADIOL. [Concomitant]
     Active Substance: ESTRADIOL
  2. SHEA [Concomitant]
  3. ARMOUR THYROID [Concomitant]
     Active Substance: THYROID, PORCINE
  4. PRAVASTATINE [Concomitant]
     Active Substance: PRAVASTATIN
  5. TOPAMAX [Suspect]
     Active Substance: TOPIRAMATE
     Indication: EPILEPSY
     Dosage: ?          QUANTITY:1 TABLET(S);?
     Route: 048
     Dates: start: 20150701, end: 20150901
  6. DOXYCYCLINE. [Concomitant]
     Active Substance: DOXYCYCLINE
  7. ALOE VERA [Concomitant]
     Active Substance: ALOE VERA LEAF
  8. VITAMIN C [Concomitant]
     Active Substance: ASCORBIC ACID
  9. VITAMIN D3 [Concomitant]
     Active Substance: CHOLECALCIFEROL
  10. MAGNESIUM [Concomitant]
     Active Substance: MAGNESIUM

REACTIONS (3)
  - Osteopenia [None]
  - Bone density decreased [None]
  - Osteoporosis [None]

NARRATIVE: CASE EVENT DATE: 20180803
